FAERS Safety Report 21544699 (Version 1)
Quarter: 2022Q4

REPORT INFORMATION
  Report Type: Report from Study
  Country: CN (occurrence: CN)
  Receive Date: 20221102
  Receipt Date: 20221102
  Transmission Date: 20230113
  Serious: Yes (Other)
  Sender: FDA-Public Use
  Company Number: CN-JNJFOC-20221046994

PATIENT

DRUGS (7)
  1. DARZALEX [Suspect]
     Active Substance: DARATUMUMAB
     Indication: Plasma cell myeloma refractory
     Dosage: FIRST THREE WEEKS (THE 1ST, 8TH AND 15TH DAYS)
     Route: 041
  2. DARZALEX [Suspect]
     Active Substance: DARATUMUMAB
     Dosage: FOURTH TO NINTH WEEKS
     Route: 041
  3. DARZALEX [Suspect]
     Active Substance: DARATUMUMAB
     Dosage: AFTER THE NINTH WEEK
     Route: 041
  4. VELCADE [Suspect]
     Active Substance: BORTEZOMIB
     Indication: Plasma cell myeloma refractory
     Dosage: TWICE A WEEK (1ST, 4TH, 8TH, 11TH, 22ND, 25TH, 29TH AND 32ND DAYS) IN THE 1ST TO 4TH WEEKS; IN THE 5
     Route: 041
  5. DOXORUBICIN [Suspect]
     Active Substance: DOXORUBICIN
     Indication: Plasma cell myeloma refractory
     Route: 065
  6. CYCLOPHOSPHAMIDE [Suspect]
     Active Substance: CYCLOPHOSPHAMIDE
     Indication: Plasma cell myeloma refractory
     Dosage: 0.8G/TIME, ONCE A WEEK
     Route: 065
  7. DEXAMETHASONE [Suspect]
     Active Substance: DEXAMETHASONE
     Indication: Plasma cell myeloma refractory
     Dosage: ONCE A WEEK
     Route: 065

REACTIONS (17)
  - Nephropathy toxic [Unknown]
  - Cardiotoxicity [Unknown]
  - Neuropathy peripheral [Unknown]
  - Hepatotoxicity [Unknown]
  - Anaemia [Unknown]
  - Platelet count decreased [Unknown]
  - Neutrophil count decreased [Unknown]
  - Nausea [Unknown]
  - Diarrhoea [Unknown]
  - Constipation [Unknown]
  - Abdominal pain upper [Unknown]
  - Rash [Unknown]
  - Pyrexia [Unknown]
  - Headache [Unknown]
  - Mouth ulceration [Unknown]
  - Fatigue [Unknown]
  - Off label use [Unknown]
